FAERS Safety Report 6594292-0 (Version None)
Quarter: 2010Q1

REPORT INFORMATION
  Report Type: 
  Country: None (occurrence: None)
  Receive Date: 20100222
  Receipt Date: 20100216
  Transmission Date: 20100710
  Serious: Yes (Disabling)
  Sender: FDA-Public Use
  Company Number: GB-MERCK-0906GBR00059

PATIENT
  Age: 52 Year
  Sex: Male
  Weight: 80 kg

DRUGS (6)
  1. ZOCOR [Suspect]
     Indication: DIABETES MELLITUS
     Route: 048
     Dates: start: 20080320, end: 20090220
  2. ASPIRIN [Concomitant]
     Indication: DIABETES MELLITUS
     Route: 048
     Dates: start: 20030101
  3. ASPIRIN [Concomitant]
     Indication: TRANSIENT ISCHAEMIC ATTACK
     Route: 048
     Dates: start: 20030101
  4. INSULIN LISPRO [Concomitant]
     Route: 065
  5. INSULIN GLARGINE [Concomitant]
     Route: 065
  6. SILDENAFIL CITRATE [Concomitant]
     Route: 048
     Dates: start: 20010101

REACTIONS (6)
  - AMNESIA [None]
  - BLOOD CREATINE PHOSPHOKINASE INCREASED [None]
  - MEMORY IMPAIRMENT [None]
  - MUSCULOSKELETAL PAIN [None]
  - MUSCULOSKELETAL STIFFNESS [None]
  - MYALGIA [None]
